FAERS Safety Report 25453471 (Version 1)
Quarter: 2025Q2

REPORT INFORMATION
  Report Type: Spontaneous
  Country: KR (occurrence: KR)
  Receive Date: 20250619
  Receipt Date: 20250619
  Transmission Date: 20250717
  Serious: Yes (Death)
  Sender: AMGEN
  Company Number: KR-AMGEN-KORSP2025119411

PATIENT
  Age: 80 Year
  Sex: Female

DRUGS (1)
  1. LUMAKRAS [Suspect]
     Active Substance: SOTORASIB
     Indication: Non-small cell lung cancer
     Dosage: 960 MILLIGRAM, QD (8 TABLETS OF 120 MG)
     Route: 048
     Dates: start: 20250411

REACTIONS (1)
  - Death [Fatal]

NARRATIVE: CASE EVENT DATE: 20250612
